FAERS Safety Report 5112596-5 (Version None)
Quarter: 2006Q3

REPORT INFORMATION
  Report Type: 
  Country: None (occurrence: None)
  Receive Date: 20060922
  Receipt Date: 20060413
  Transmission Date: 20061208
  Serious: Yes (Other)
  Sender: FDA-Public Use
  Company Number: PHNU2006DE01672

PATIENT
  Age: 67 Year
  Sex: Female

DRUGS (1)
  1. FEMARA [Suspect]
     Indication: BREAST CANCER
     Dosage: 2.5 MG, QD
     Route: 048
     Dates: start: 20040901

REACTIONS (14)
  - ALOPECIA [None]
  - ARTHRALGIA [None]
  - CATARACT [None]
  - CATARACT OPERATION [None]
  - DRY EYE [None]
  - HOT FLUSH [None]
  - JOINT EFFUSION [None]
  - JOINT SWELLING [None]
  - MUSCULOSKELETAL PAIN [None]
  - OSTEOPENIA [None]
  - PRURITUS [None]
  - SKIN DISCOLOURATION [None]
  - SKIN NODULE [None]
  - SOMNOLENCE [None]
